FAERS Safety Report 22780569 (Version 9)
Quarter: 2025Q1

REPORT INFORMATION
  Report Type: Spontaneous
  Country: BE (occurrence: BE)
  Receive Date: 20230803
  Receipt Date: 20250206
  Transmission Date: 20250408
  Serious: Yes (Hospitalization, Other)
  Sender: CELLTRION
  Company Number: None

PATIENT

DRUGS (39)
  1. INFLIXIMAB [Suspect]
     Active Substance: INFLIXIMAB
     Indication: Autoimmune colitis
     Route: 042
  2. INFLIXIMAB [Suspect]
     Active Substance: INFLIXIMAB
     Indication: Colitis
  3. INFLIXIMAB [Suspect]
     Active Substance: INFLIXIMAB
     Indication: Immune-mediated enterocolitis
     Route: 065
  4. INFLIXIMAB [Suspect]
     Active Substance: INFLIXIMAB
     Indication: Colitis ulcerative
     Route: 065
  5. INFLIXIMAB [Suspect]
     Active Substance: INFLIXIMAB
  6. INFLIXIMAB [Suspect]
     Active Substance: INFLIXIMAB
     Route: 065
  7. INFLIXIMAB [Suspect]
     Active Substance: INFLIXIMAB
     Route: 065
  8. INFLIXIMAB [Suspect]
     Active Substance: INFLIXIMAB
     Route: 042
     Dates: start: 2021
  9. MYCOPHENOLATE MOFETIL [Suspect]
     Active Substance: MYCOPHENOLATE MOFETIL
     Indication: Colitis
     Route: 048
  10. MYCOPHENOLATE MOFETIL [Suspect]
     Active Substance: MYCOPHENOLATE MOFETIL
     Indication: Autoimmune colitis
     Route: 048
  11. MYCOPHENOLATE MOFETIL [Suspect]
     Active Substance: MYCOPHENOLATE MOFETIL
     Indication: Colitis
     Route: 065
  12. MYCOPHENOLATE MOFETIL [Suspect]
     Active Substance: MYCOPHENOLATE MOFETIL
     Indication: Colitis ulcerative
     Route: 048
  13. MYCOPHENOLATE MOFETIL [Suspect]
     Active Substance: MYCOPHENOLATE MOFETIL
     Indication: Immune-mediated enterocolitis
     Route: 048
     Dates: start: 2021
  14. MYCOPHENOLATE MOFETIL [Suspect]
     Active Substance: MYCOPHENOLATE MOFETIL
     Route: 048
     Dates: start: 2021
  15. MYCOPHENOLATE MOFETIL [Suspect]
     Active Substance: MYCOPHENOLATE MOFETIL
     Route: 048
     Dates: start: 2021
  16. MYCOPHENOLATE MOFETIL [Suspect]
     Active Substance: MYCOPHENOLATE MOFETIL
     Indication: Immune-mediated enterocolitis
     Route: 048
     Dates: start: 2021
  17. MYCOPHENOLATE MOFETIL [Suspect]
     Active Substance: MYCOPHENOLATE MOFETIL
     Indication: Colitis ulcerative
     Route: 048
     Dates: start: 2021
  18. BECLOMETHASONE DIPROPIONATE [Suspect]
     Active Substance: BECLOMETHASONE DIPROPIONATE
     Indication: Colitis ulcerative
     Route: 061
     Dates: start: 2021
  19. BECLOMETHASONE DIPROPIONATE [Suspect]
     Active Substance: BECLOMETHASONE DIPROPIONATE
     Indication: Autoimmune colitis
     Route: 061
     Dates: start: 2021
  20. BECLOMETHASONE DIPROPIONATE [Suspect]
     Active Substance: BECLOMETHASONE DIPROPIONATE
     Indication: Immune-mediated enterocolitis
     Route: 065
  21. BECLOMETHASONE DIPROPIONATE [Suspect]
     Active Substance: BECLOMETHASONE DIPROPIONATE
     Indication: Colitis ulcerative
     Route: 061
     Dates: start: 2021
  22. BECLOMETHASONE DIPROPIONATE [Suspect]
     Active Substance: BECLOMETHASONE DIPROPIONATE
     Indication: Immune-mediated enterocolitis
  23. METHYLPREDNISOLONE [Suspect]
     Active Substance: METHYLPREDNISOLONE
     Indication: Colitis
     Route: 042
     Dates: start: 2021
  24. METHYLPREDNISOLONE [Suspect]
     Active Substance: METHYLPREDNISOLONE
     Indication: Colitis ulcerative
     Route: 042
     Dates: start: 2021
  25. METHYLPREDNISOLONE [Suspect]
     Active Substance: METHYLPREDNISOLONE
     Indication: Autoimmune colitis
     Route: 048
     Dates: start: 2021
  26. METHYLPREDNISOLONE [Suspect]
     Active Substance: METHYLPREDNISOLONE
     Indication: Immune-mediated enterocolitis
     Route: 042
     Dates: start: 2021
  27. CORTICOSTEROID NOS [Concomitant]
     Active Substance: CORTICOSTEROID NOS
     Indication: Immune-mediated enterocolitis
     Route: 065
  28. NIVOLUMAB [Concomitant]
     Active Substance: NIVOLUMAB
     Indication: Malignant melanoma
     Dates: start: 202012
  29. NIVOLUMAB [Concomitant]
     Active Substance: NIVOLUMAB
     Dates: start: 202012
  30. NIVOLUMAB [Concomitant]
     Active Substance: NIVOLUMAB
     Route: 065
  31. MYCOPHENOLATE MOFETIL [Concomitant]
     Active Substance: MYCOPHENOLATE MOFETIL
     Indication: Colitis
     Route: 048
  32. MYCOPHENOLATE MOFETIL [Concomitant]
     Active Substance: MYCOPHENOLATE MOFETIL
     Indication: Autoimmune colitis
     Route: 048
  33. MYCOPHENOLATE MOFETIL [Concomitant]
     Active Substance: MYCOPHENOLATE MOFETIL
     Indication: Immune-mediated enterocolitis
     Route: 065
  34. MYCOPHENOLATE MOFETIL [Concomitant]
     Active Substance: MYCOPHENOLATE MOFETIL
     Route: 065
  35. BECLOMETHASONE DIPROPIONATE [Concomitant]
     Active Substance: BECLOMETHASONE DIPROPIONATE
     Indication: Colitis
     Route: 061
  36. BECLOMETHASONE DIPROPIONATE [Concomitant]
     Active Substance: BECLOMETHASONE DIPROPIONATE
     Indication: Immune-mediated enterocolitis
  37. METHYLPREDNISOLONE [Concomitant]
     Active Substance: METHYLPREDNISOLONE
     Indication: Colitis
     Route: 042
  38. METHYLPREDNISOLONE [Concomitant]
     Active Substance: METHYLPREDNISOLONE
     Indication: Immune-mediated enterocolitis
     Route: 042
  39. METHYLPREDNISOLONE [Concomitant]
     Active Substance: METHYLPREDNISOLONE
     Route: 048

REACTIONS (16)
  - Immune-mediated enterocolitis [Recovered/Resolved]
  - Autoimmune colitis [Unknown]
  - Diarrhoea [Recovered/Resolved]
  - Cytomegalovirus infection reactivation [Recovering/Resolving]
  - Immunosuppression [Unknown]
  - Staphylococcal bacteraemia [Recovering/Resolving]
  - Enterococcal bacteraemia [Recovering/Resolving]
  - Sepsis [Recovered/Resolved]
  - Infection [Unknown]
  - Large intestine infection [Recovering/Resolving]
  - Mononucleosis syndrome [Recovering/Resolving]
  - Bacterial sepsis [Recovering/Resolving]
  - Enterococcal infection [Recovering/Resolving]
  - Drug ineffective [Unknown]
  - Off label use [Unknown]
  - Drug ineffective for unapproved indication [Unknown]

NARRATIVE: CASE EVENT DATE: 20210101
